FAERS Safety Report 5186133-3 (Version None)
Quarter: 2006Q4

REPORT INFORMATION
  Report Type: 
  Country: None (occurrence: None)
  Receive Date: 20061220
  Receipt Date: 20061027
  Transmission Date: 20070319
  Serious: No
  Sender: FDA-Public Use
  Company Number: US-GLAXOSMITHKLINE-A0625173A

PATIENT
  Age: 43 Year
  Sex: Female

DRUGS (2)
  1. NICODERM CQ [Suspect]
     Dates: start: 20061013
  2. PAXIL CR [Concomitant]

REACTIONS (6)
  - ABNORMAL DREAMS [None]
  - AGITATION [None]
  - CONSTIPATION [None]
  - INSOMNIA [None]
  - NICOTINE DEPENDENCE [None]
  - NIGHTMARE [None]
